FAERS Safety Report 25433443 (Version 1)
Quarter: 2025Q2

REPORT INFORMATION
  Report Type: Spontaneous
  Country: US (occurrence: None)
  Receive Date: 20250613
  Receipt Date: 20250613
  Transmission Date: 20250717
  Serious: No
  Sender: MDD OPERATIONS
  Company Number: US-MDD US Operations-MDD202410-003938

PATIENT
  Age: 68 Year
  Sex: Male

DRUGS (5)
  1. APOKYN [Suspect]
     Active Substance: APOMORPHINE HYDROCHLORIDE
     Indication: Parkinson^s disease
     Route: 058
  2. APOKYN [Suspect]
     Active Substance: APOMORPHINE HYDROCHLORIDE
     Dosage: 0.4 ML 1-3 TIMES PER DAY
     Route: 058
     Dates: start: 20241015
  3. APOKYN [Suspect]
     Active Substance: APOMORPHINE HYDROCHLORIDE
     Dosage: CART 30MG/3ML, 2 TO 3 INJECTIONS A DAY
     Route: 058
     Dates: start: 20241015
  4. DUOPA [Concomitant]
     Active Substance: CARBIDOPA\LEVODOPA
  5. DUOPA [Concomitant]
     Active Substance: CARBIDOPA\LEVODOPA
     Dosage: CONTINUOUS DOSE

REACTIONS (5)
  - On and off phenomenon [Recovered/Resolved]
  - On and off phenomenon [Unknown]
  - Dyskinesia [Not Recovered/Not Resolved]
  - Dyskinesia [Recovered/Resolved]
  - Dyskinesia [Recovered/Resolved]

NARRATIVE: CASE EVENT DATE: 20241015
